FAERS Safety Report 7381354-3 (Version None)
Quarter: 2011Q1

REPORT INFORMATION
  Report Type: 
  Country: None (occurrence: None)
  Receive Date: 20110323
  Receipt Date: 20110323
  Transmission Date: 20110831
  Serious: Yes (Hospitalization)
  Sender: FDA-Public Use
  Company Number: None

PATIENT
  Sex: Female
  Weight: 109 kg

DRUGS (5)
  1. RITUXIMAB (MOAB C2B8 ANTI CD20, CHIMERIC) [Suspect]
     Dosage: 830 MG
  2. CYCLOPHOSPHAMIDE [Suspect]
     Dosage: 1660 MG
  3. DOXORUBICIN HYDROCHLORIDE [Suspect]
     Dosage: 111 MG
  4. VINCRISTINE SULFATE [Suspect]
     Dosage: 2 MG
  5. PREDNISONE [Suspect]
     Dosage: 450 MG

REACTIONS (8)
  - CHILLS [None]
  - COUGH [None]
  - CULTURE URINE POSITIVE [None]
  - NEUTROPENIA [None]
  - BETA HAEMOLYTIC STREPTOCOCCAL INFECTION [None]
  - PYREXIA [None]
  - RESPIRATORY SYNCYTIAL VIRUS TEST POSITIVE [None]
  - WHITE BLOOD CELL COUNT DECREASED [None]
